FAERS Safety Report 9382045 (Version 1)
Quarter: 2013Q3

REPORT INFORMATION
  Report Type: Spontaneous
  Country: CN (occurrence: CN)
  Receive Date: 20130703
  Receipt Date: 20130703
  Transmission Date: 20140515
  Serious: Yes (Other)
  Sender: FDA-Public Use
  Company Number: CN-PFIZER INC-2013195978

PATIENT
  Age: 58 Year
  Sex: Male

DRUGS (7)
  1. SIROLIMUS [Suspect]
     Indication: PROPHYLAXIS AGAINST TRANSPLANT REJECTION
     Dosage: 2 MG, DAILY
     Dates: start: 201006, end: 201106
  2. SIROLIMUS [Suspect]
     Dosage: 1 MG, DAILY
     Dates: start: 201106, end: 201204
  3. MYCOPHENOLATE MOFETIL [Concomitant]
     Dosage: 1500 MG, DAILY
     Dates: start: 201006, end: 201106
  4. MYCOPHENOLATE MOFETIL [Concomitant]
     Dosage: 1000 MG, DAILY
     Dates: start: 201106, end: 201204
  5. MYCOPHENOLATE MOFETIL [Concomitant]
     Dosage: UNK
     Dates: start: 201204
  6. METHYLPREDNISOLONE [Concomitant]
     Indication: GOUTY ARTHRITIS
     Dosage: UNK
     Dates: start: 201106
  7. METHYLPREDNISOLONE [Concomitant]
     Dosage: UNK
     Dates: start: 201106

REACTIONS (2)
  - Gastroduodenal ulcer [Recovered/Resolved]
  - Off label use [Unknown]
